FAERS Safety Report 4881378-1 (Version None)
Quarter: 2006Q1

REPORT INFORMATION
  Report Type: 
  Country: None (occurrence: None)
  Receive Date: 20060111
  Receipt Date: 20060111
  Transmission Date: 20060701
  Serious: No
  Sender: FDA-Public Use
  Company Number: None

PATIENT
  Age: 73 Year
  Sex: Male
  Weight: 75.2971 kg

DRUGS (2)
  1. ETHAMBUTOL 400 MGM [Suspect]
     Indication: TUBERCULOSIS
     Dosage: 3200 MGM
     Dates: start: 20051219
  2. INH [Suspect]
     Dosage: 300 MGM
     Dates: start: 20051222

REACTIONS (4)
  - DISTURBANCE IN ATTENTION [None]
  - FEELING ABNORMAL [None]
  - MEMORY IMPAIRMENT [None]
  - PRURITUS [None]
